FAERS Safety Report 4521820-9 (Version None)
Quarter: 2004Q4

REPORT INFORMATION
  Report Type: 
  Country: None (occurrence: None)
  Receive Date: 20041208
  Receipt Date: 20041208
  Transmission Date: 20050328
  Serious: Yes (Disabling)
  Sender: FDA-Public Use
  Company Number: None

PATIENT
  Sex: Female
  Weight: 65.7716 kg

DRUGS (1)
  1. EFFEXOR XR [Suspect]
     Indication: ANXIETY
     Dosage: 150MG  ONCE DAILY  ORAL
     Route: 048
     Dates: start: 19980309, end: 20041201

REACTIONS (11)
  - BALANCE DISORDER [None]
  - DRUG WITHDRAWAL SYNDROME [None]
  - HEADACHE [None]
  - HYPERHIDROSIS [None]
  - HYPERSOMNIA [None]
  - IMPAIRED WORK ABILITY [None]
  - NARCOLEPSY [None]
  - NAUSEA [None]
  - PARAESTHESIA [None]
  - TREMOR [None]
  - YAWNING [None]
